FAERS Safety Report 4851688-2 (Version None)
Quarter: 2005Q4

REPORT INFORMATION
  Report Type: 
  Country: None (occurrence: None)
  Receive Date: 20051209
  Receipt Date: 20051209
  Transmission Date: 20060501
  Serious: Yes (Hospitalization)
  Sender: FDA-Public Use
  Company Number: None

PATIENT
  Age: 44 Year
  Sex: Female
  Weight: 101.2 kg

DRUGS (1)
  1. ERBTIUX [Suspect]
     Indication: SQUAMOUS CELL CARCINOMA
     Dosage: 250 ONCE/WEEK IV DRIP
     Route: 042
     Dates: start: 20051010, end: 20051128

REACTIONS (10)
  - COMPUTERISED TOMOGRAM ABNORMAL [None]
  - DIPLOPIA [None]
  - GAIT DISTURBANCE [None]
  - LUNG INFILTRATION [None]
  - LUNG NEOPLASM [None]
  - MALAISE [None]
  - NAUSEA [None]
  - OXYGEN SATURATION DECREASED [None]
  - RESPIRATORY DISTRESS [None]
  - VOMITING [None]
